FAERS Safety Report 10642946 (Version 3)
Quarter: 2015Q1

REPORT INFORMATION
  Report Type: Spontaneous
  Country: JP (occurrence: JP)
  Receive Date: 20141210
  Receipt Date: 20150202
  Transmission Date: 20150720
  Serious: Yes (Other)
  Sender: FDA-Public Use
  Company Number: JP-SA-2014SA156914

PATIENT
  Age: 26 Year
  Sex: Female

DRUGS (6)
  1. HUMALOG [Concomitant]
     Active Substance: INSULIN LISPRO
     Indication: TYPE 1 DIABETES MELLITUS
     Dosage: DOSE: 34 IU/DAY (10-12-12)
     Route: 058
     Dates: start: 20140314
  2. NICARDIPINE [Concomitant]
     Active Substance: NICARDIPINE
  3. LANTUS SOLOSTAR [Suspect]
     Active Substance: INSULIN GLARGINE
     Indication: TYPE 1 DIABETES MELLITUS
     Dosage: DOSE- 17-0-0-17
     Route: 058
     Dates: end: 20140314
  4. MAGNESOL [Concomitant]
  5. SOLOSTAR [Concomitant]
     Active Substance: DEVICE
     Indication: TYPE 1 DIABETES MELLITUS
  6. ADALAT CC [Concomitant]
     Active Substance: NIFEDIPINE
     Route: 048

REACTIONS (4)
  - Caesarean section [Unknown]
  - Obstructed labour [Unknown]
  - Off label use [Unknown]
  - Exposure during pregnancy [Unknown]

NARRATIVE: CASE EVENT DATE: 20141022
